FAERS Safety Report 4718743-9 (Version None)
Quarter: 2005Q3

REPORT INFORMATION
  Report Type: 
  Country: None (occurrence: None)
  Receive Date: 20050719
  Receipt Date: 20050705
  Transmission Date: 20060218
  Serious: Yes (Other)
  Sender: FDA-Public Use
  Company Number: HQWYE976006JUL05

PATIENT
  Age: 8 Year
  Sex: Female

DRUGS (3)
  1. MYLOTARG [Suspect]
     Indication: ACUTE MYELOID LEUKAEMIA
     Dosage: 6 MG/M2, UNKNOWN
  2. CYCLOSPORINE [Concomitant]
  3. METHOTREXATE [Concomitant]

REACTIONS (8)
  - BILIARY TRACT DISORDER [None]
  - BIOPSY LIVER ABNORMAL [None]
  - BONE MARROW TRANSPLANT [None]
  - CHOLESTASIS [None]
  - ESCHERICHIA SEPSIS [None]
  - HEPATIC FIBROSIS [None]
  - HEPATIC STEATOSIS [None]
  - MUCOSAL INFLAMMATION [None]
